FAERS Safety Report 13857419 (Version 1)
Quarter: 2017Q3

REPORT INFORMATION
  Report Type: Spontaneous
  Country: FR (occurrence: FR)
  Receive Date: 20170810
  Receipt Date: 20170810
  Transmission Date: 20171127
  Serious: Yes (Hospitalization)
  Sender: FDA-Public Use
  Company Number: FR-ASTRAZENECA-2017SE80451

PATIENT
  Age: 79 Year
  Sex: Male

DRUGS (8)
  1. BACTRIM [Suspect]
     Active Substance: SULFAMETHOXAZOLE\TRIMETHOPRIM
     Indication: URINARY TRACT INFECTION
     Route: 048
     Dates: start: 20170104, end: 20170114
  2. CARDENSIEL [Concomitant]
     Active Substance: BISOPROLOL FUMARATE
     Route: 048
  3. TAREG [Concomitant]
     Active Substance: VALSARTAN
     Route: 048
  4. KARDEGIC [Concomitant]
     Active Substance: ASPIRIN LYSINE
     Route: 048
  5. PRAVASTATIN. [Concomitant]
     Active Substance: PRAVASTATIN
     Route: 048
  6. ZYMAD [Concomitant]
     Active Substance: CHOLECALCIFEROL
     Dosage: 80000 IU TWICE A YEAR
     Route: 048
  7. CASODEX [Suspect]
     Active Substance: BICALUTAMIDE
     Indication: PROSTATE CANCER
     Route: 048
     Dates: start: 20170106, end: 20170109
  8. CHONDROSULF [Concomitant]
     Active Substance: CHONDROITIN SULFATE (CHICKEN)
     Route: 048

REACTIONS (2)
  - Hypersensitivity vasculitis [Recovered/Resolved]
  - Palpable purpura [Recovered/Resolved]

NARRATIVE: CASE EVENT DATE: 20170112
